FAERS Safety Report 8362670-5 (Version None)
Quarter: 2012Q2

REPORT INFORMATION
  Report Type: 
  Country: None (occurrence: None)
  Receive Date: 20120516
  Receipt Date: 20120511
  Transmission Date: 20120825
  Serious: Yes (Disabling)
  Sender: FDA-Public Use
  Company Number: CA-SANOFI-AVENTIS-2012SA033591

PATIENT
  Age: 53 Year
  Sex: Female

DRUGS (6)
  1. HUMALOG [Suspect]
     Dosage: DOSE REDUCED DOSE:4 UNIT(S)
     Route: 065
  2. HUMALOG [Suspect]
     Dosage: UPTO 20 UNITS
     Route: 065
  3. LANTUS [Suspect]
     Dosage: DOSE REDUCED DOSE:15 UNIT(S)
     Route: 065
  4. LANTUS [Suspect]
     Dosage: DOSE:12 UNIT(S)
     Route: 065
  5. LANTUS [Suspect]
     Dosage: DOSE: UPTO 32 UNITS PER DAY
     Route: 065
  6. HUMALOG [Suspect]
     Dosage: DOSE:6 UNIT(S)
     Route: 065

REACTIONS (3)
  - RENAL FAILURE [None]
  - HYPERGLYCAEMIA [None]
  - HYPOGLYCAEMIA [None]
